FAERS Safety Report 19365656 (Version 1)
Quarter: 2021Q2

REPORT INFORMATION
  Report Type: Spontaneous
  Country: US (occurrence: US)
  Receive Date: 20210602
  Receipt Date: 20210602
  Transmission Date: 20210717
  Serious: No
  Sender: FDA-Public Use
  Company Number: US-TEIKOKU PHARMA USA-TPU2021-00556

PATIENT
  Sex: Male
  Weight: 126.67 kg

DRUGS (2)
  1. 35 OTHER MEDICATIONS, BUT DECLINED TO PROVIDE CONCOMITANT MEDICATIONS [Concomitant]
  2. LIDOCAINE PATCH [Suspect]
     Active Substance: LIDOCAINE
     Indication: PAIN
     Dosage: 2?3 PATCHES ON AFFECTED AREA TWICE A DAY
     Route: 061
     Dates: start: 2018

REACTIONS (1)
  - Inappropriate schedule of product administration [Unknown]

NARRATIVE: CASE EVENT DATE: 2018
